FAERS Safety Report 4768521-X (Version None)
Quarter: 2005Q3

REPORT INFORMATION
  Report Type: 
  Country: None (occurrence: None)
  Receive Date: 20050914
  Receipt Date: 20050822
  Transmission Date: 20060218
  Serious: Yes (Other)
  Sender: FDA-Public Use
  Company Number: US-AMGEN-KDL147410

PATIENT
  Sex: Female

DRUGS (3)
  1. ENBREL [Suspect]
     Indication: RHEUMATOID ARTHRITIS
     Route: 058
     Dates: start: 20000101, end: 20050509
  2. PREDNISONE [Concomitant]
  3. IBUPROFEN [Concomitant]

REACTIONS (4)
  - JOINT SWELLING [None]
  - OEDEMA PERIPHERAL [None]
  - PROTEINURIA [None]
  - VASCULITIS [None]
